FAERS Safety Report 26195109 (Version 1)
Quarter: 2025Q4

REPORT INFORMATION
  Report Type: Spontaneous
  Country: EU (occurrence: None)
  Receive Date: 20251224
  Receipt Date: 20251224
  Transmission Date: 20260117
  Serious: Yes (Death, Other)
  Sender: UCB
  Company Number: EU-UCBSA-2025080616

PATIENT

DRUGS (1)
  1. CERTOLIZUMAB PEGOL [Suspect]
     Active Substance: CERTOLIZUMAB PEGOL
     Indication: Product used for unknown indication
     Dosage: UNK

REACTIONS (5)
  - Cardiac failure [Fatal]
  - Restrictive cardiomyopathy [Fatal]
  - Low birth weight baby [Unknown]
  - Premature baby [Unknown]
  - Maternal exposure during pregnancy [Unknown]
